FAERS Safety Report 6066229-4 (Version None)
Quarter: 2009Q1

REPORT INFORMATION
  Report Type: 
  Country: None (occurrence: None)
  Receive Date: 20090205
  Receipt Date: 20090127
  Transmission Date: 20090719
  Serious: Yes (Hospitalization)
  Sender: FDA-Public Use
  Company Number: IN-PFIZER INC-2009162494

PATIENT

DRUGS (7)
  1. SUNITINIB MALATE [Suspect]
     Indication: METASTATIC RENAL CELL CARCINOMA
     Dosage: 50 MG, 1X/DAY
     Route: 048
     Dates: start: 20070601, end: 20071024
  2. SUNITINIB MALATE [Suspect]
     Dosage: 37.5 MG, 1X/DAY
     Route: 048
     Dates: start: 20071116
  3. METOPROLOL [Concomitant]
     Dosage: UNK
     Route: 048
     Dates: start: 20070920
  4. THYROXINE [Concomitant]
     Dosage: UNK
     Route: 048
     Dates: start: 20080918
  5. SHELCAL [Concomitant]
     Dosage: UNK
     Route: 048
     Dates: start: 20071025
  6. AMLODIPINE [Concomitant]
     Dosage: UNK
     Route: 048
     Dates: start: 20080411
  7. MINIPRESS XL [Concomitant]
     Dosage: UNK
     Route: 048
     Dates: start: 20081118, end: 20090110

REACTIONS (2)
  - DIARRHOEA [None]
  - GASTRITIS [None]
